FAERS Safety Report 20736054 (Version 1)
Quarter: 2022Q2

REPORT INFORMATION
  Report Type: Other
  Country: US (occurrence: None)
  Receive Date: 20220421
  Receipt Date: 20220421
  Transmission Date: 20220721
  Serious: No
  Sender: FDA-Public Use
  Company Number: US-ROCHE-2894744

PATIENT
  Age: 56 Year
  Sex: Female
  Weight: 136.20 kg

DRUGS (30)
  1. OCREVUS [Suspect]
     Active Substance: OCRELIZUMAB
     Indication: Relapsing multiple sclerosis
     Dosage: (PRESCRIBED AS 300 MG ON DAY 1 AN DAY 15 AND 600 MG ONCE IN 6 MONTHS)
     Route: 042
  2. OCREVUS [Suspect]
     Active Substance: OCRELIZUMAB
     Dosage: ONGOING: YES
     Route: 042
     Dates: start: 20200827
  3. TIZANIDINE [Concomitant]
     Active Substance: TIZANIDINE
     Indication: Muscle spasticity
     Route: 048
  4. TRAZODONE [Concomitant]
     Active Substance: TRAZODONE HYDROCHLORIDE
     Route: 048
     Dates: start: 202105
  5. OMEPRAZOLE [Concomitant]
     Active Substance: OMEPRAZOLE
  6. HYDROCHLOROTHIAZIDE [Concomitant]
     Active Substance: HYDROCHLOROTHIAZIDE
     Indication: Blood pressure measurement
     Route: 048
  7. MELOXICAM [Concomitant]
     Active Substance: MELOXICAM
  8. PREGABALIN [Concomitant]
     Active Substance: PREGABALIN
  9. PROPRANOLOL [Concomitant]
     Active Substance: PROPRANOLOL HYDROCHLORIDE
  10. EFFEXOR [Concomitant]
     Active Substance: VENLAFAXINE HYDROCHLORIDE
  11. ZOFRAN [Concomitant]
     Active Substance: ONDANSETRON HYDROCHLORIDE
  12. ALBUTEROL [Concomitant]
     Active Substance: ALBUTEROL
  13. KETOTIFEN [Concomitant]
     Active Substance: KETOTIFEN
  14. BACLOFEN [Concomitant]
     Active Substance: BACLOFEN
  15. FLONASE [Concomitant]
     Active Substance: FLUTICASONE PROPIONATE
  16. AMPYRA [Concomitant]
     Active Substance: DALFAMPRIDINE
  17. VORTIOXETINE [Concomitant]
     Active Substance: VORTIOXETINE
  18. SYNTHROID [Concomitant]
     Active Substance: LEVOTHYROXINE SODIUM
  19. MAXALT [Concomitant]
     Active Substance: RIZATRIPTAN BENZOATE
  20. TEGRETOL [Concomitant]
     Active Substance: CARBAMAZEPINE
  21. ADDERALL [Concomitant]
     Active Substance: AMPHETAMINE ASPARTATE\AMPHETAMINE SULFATE\DEXTROAMPHETAMINE SACCHARATE\DEXTROAMPHETAMINE SULFATE
  22. GENTAMICIN [Concomitant]
     Active Substance: GENTAMICIN
  23. KEFLEX [Concomitant]
     Active Substance: CEPHALEXIN
  24. NUCYNTA [Concomitant]
     Active Substance: TAPENTADOL HYDROCHLORIDE
  25. MIRABEGRON [Concomitant]
     Active Substance: MIRABEGRON
  26. CALCIUM [Concomitant]
     Active Substance: CALCIUM
  27. KRILL OIL [Concomitant]
     Active Substance: DIETARY SUPPLEMENT\KRILL OIL
  28. TYLENOL [Concomitant]
     Active Substance: ACETAMINOPHEN
  29. METAMUCIL [Concomitant]
     Active Substance: PLANTAGO SEED
  30. AMITRIPTYLINE [Concomitant]
     Active Substance: AMITRIPTYLINE

REACTIONS (6)
  - Heart rate increased [Recovered/Resolved]
  - Blood pressure increased [Recovered/Resolved]
  - Urinary tract infection [Not Recovered/Not Resolved]
  - Trigeminal neuralgia [Not Recovered/Not Resolved]
  - Dry mouth [Unknown]
  - COVID-19 [Unknown]

NARRATIVE: CASE EVENT DATE: 20210225
